FAERS Safety Report 6748807-X (Version None)
Quarter: 2010Q2

REPORT INFORMATION
  Report Type: 
  Country: None (occurrence: None)
  Receive Date: 20100601
  Receipt Date: 20100520
  Transmission Date: 20101027
  Serious: Yes (Other)
  Sender: FDA-Public Use
  Company Number: PHHY2010JP25923

PATIENT
  Sex: Female

DRUGS (12)
  1. LOPRESSOR [Suspect]
     Indication: HYPERTENSION
     Dosage: 120 MG, AFTER BREAKFAST
     Route: 048
     Dates: end: 20100411
  2. LOPRESSOR [Suspect]
     Indication: ARRHYTHMIA
  3. ANGINAL [Concomitant]
     Dosage: UNK
     Route: 048
  4. ASPIRIN [Concomitant]
     Dosage: UNK
     Route: 048
  5. DIOVAN [Concomitant]
     Dosage: 20 MG, UNK
     Route: 048
  6. DIOVAN [Concomitant]
     Dosage: 40 MG, UNK
     Route: 048
  7. ZANTAC [Concomitant]
     Dosage: 300 MG, UNK
     Route: 048
  8. BUFFERIN [Concomitant]
     Dosage: 81 MG, UNK
     Route: 048
  9. PERDIPINE [Concomitant]
     Dosage: 30 MG, UNK
     Route: 048
  10. FRANDOL [Concomitant]
     Dosage: 40 MG, UNK
  11. CONIEL [Concomitant]
     Dosage: 2 MG, UNK
     Route: 048
  12. CONIEL [Concomitant]
     Dosage: 2 MG, UNK
     Route: 048

REACTIONS (6)
  - HAEMORRHAGE SUBCUTANEOUS [None]
  - HYPERTENSION [None]
  - OEDEMA [None]
  - OEDEMA PERIPHERAL [None]
  - SKIN DISCOLOURATION [None]
  - SWELLING FACE [None]
